FAERS Safety Report 4372716-7 (Version None)
Quarter: 2004Q2

REPORT INFORMATION
  Report Type: 
  Country: None (occurrence: None)
  Receive Date: 20040526
  Receipt Date: 20040518
  Transmission Date: 20050107
  Serious: No
  Sender: FDA-Public Use
  Company Number: 2004UW07059

PATIENT
  Age: 37 Year
  Sex: Female
  Weight: 84.8226 kg

DRUGS (1)
  1. ATACAND [Suspect]
     Indication: HYPERTENSION
     Dosage: 16 MG QD PO
     Route: 048

REACTIONS (1)
  - HYPOKALAEMIA [None]
